FAERS Safety Report 23924846 (Version 1)
Quarter: 2024Q2

REPORT INFORMATION
  Report Type: Spontaneous
  Country: US (occurrence: None)
  Receive Date: 20240530
  Receipt Date: 20240530
  Transmission Date: 20240715
  Serious: No
  Sender: FDA-Public Use
  Company Number: None

PATIENT
  Sex: 0

DRUGS (1)
  1. MESALAMINE [Suspect]
     Active Substance: MESALAMINE

REACTIONS (4)
  - Pain [None]
  - Abdominal pain upper [None]
  - Constipation [None]
  - Diarrhoea [None]
